FAERS Safety Report 19394305 (Version 2)
Quarter: 2022Q1

REPORT INFORMATION
  Report Type: Spontaneous
  Country: US (occurrence: US)
  Receive Date: 20210609
  Receipt Date: 20220120
  Transmission Date: 20220424
  Serious: Yes (Other)
  Sender: FDA-Public Use
  Company Number: US-GILEAD-2021-0534932

PATIENT
  Age: 50 Year
  Sex: Female
  Weight: 121.54 kg

DRUGS (36)
  1. VIREAD [Suspect]
     Active Substance: TENOFOVIR DISOPROXIL FUMARATE
     Indication: HIV infection
     Dosage: UNK
     Route: 048
     Dates: start: 2005
  2. VIREAD [Suspect]
     Active Substance: TENOFOVIR DISOPROXIL FUMARATE
     Dosage: UNK
     Route: 048
     Dates: start: 20100901, end: 20130113
  3. TRUVADA [Suspect]
     Active Substance: EMTRICITABINE\TENOFOVIR DISOPROXIL FUMARATE
     Indication: HIV infection
     Dosage: UNK
     Route: 048
     Dates: start: 2005
  4. ATRIPLA [Suspect]
     Active Substance: EFAVIRENZ\EMTRICITABINE\TENOFOVIR DISOPROXIL FUMARATE
     Indication: HIV infection
     Dosage: UNK
     Route: 048
     Dates: start: 2005
  5. ATRIPLA [Suspect]
     Active Substance: EFAVIRENZ\EMTRICITABINE\TENOFOVIR DISOPROXIL FUMARATE
     Dosage: UNK
     Route: 048
     Dates: start: 20130215, end: 201611
  6. BIKTARVY [Concomitant]
     Active Substance: BICTEGRAVIR SODIUM\EMTRICITABINE\TENOFOVIR ALAFENAMIDE FUMARATE
  7. EPZICOM [Concomitant]
     Active Substance: ABACAVIR SULFATE\LAMIVUDINE
  8. GENVOYA [Concomitant]
     Active Substance: COBICISTAT\ELVITEGRAVIR\EMTRICITABINE\TENOFOVIR ALAFENAMIDE FUMARATE
  9. KALETRA [Concomitant]
     Active Substance: LOPINAVIR\RITONAVIR
  10. NORVIR [Concomitant]
     Active Substance: RITONAVIR
  11. PREZISTA [Concomitant]
     Active Substance: DARUNAVIR ETHANOLATE
  12. AMOXICILLIN [Concomitant]
     Active Substance: AMOXICILLIN
  13. ATORVASTATIN [Concomitant]
     Active Substance: ATORVASTATIN
  14. CLOTRIMAZOLE [Concomitant]
     Active Substance: CLOTRIMAZOLE
  15. DORZOLAMIDE [Concomitant]
     Active Substance: DORZOLAMIDE
  16. FLUCONAZOLE [Concomitant]
     Active Substance: FLUCONAZOLE
  17. FUROSEMIDE [Concomitant]
     Active Substance: FUROSEMIDE
  18. GABAPENTIN [Concomitant]
     Active Substance: GABAPENTIN
  19. GLIMEPIRIDE [Concomitant]
     Active Substance: GLIMEPIRIDE
  20. GLIPIZIDE [Concomitant]
     Active Substance: GLIPIZIDE
  21. HUMALOG [Concomitant]
     Active Substance: INSULIN LISPRO
  22. INSULIN NOS [Concomitant]
     Active Substance: INSULIN NOS
  23. JANUVIA [Concomitant]
     Active Substance: SITAGLIPTIN PHOSPHATE
  24. JARDIANCE [Concomitant]
     Active Substance: EMPAGLIFLOZIN
  25. LATANOPROST [Concomitant]
     Active Substance: LATANOPROST
  26. INSULIN LISPRO [Concomitant]
     Active Substance: INSULIN LISPRO
  27. METFORMIN [Concomitant]
     Active Substance: METFORMIN HYDROCHLORIDE
  28. METOCLOPRAMIDE [Concomitant]
     Active Substance: METOCLOPRAMIDE
  29. NEXIUM I.V. [Concomitant]
     Active Substance: ESOMEPRAZOLE SODIUM
  30. NOVOLOG [Concomitant]
     Active Substance: INSULIN ASPART
  31. OMEPRAZOLE [Concomitant]
     Active Substance: OMEPRAZOLE
  32. OXYCODONE [Concomitant]
     Active Substance: OXYCODONE
  33. PRAVASTATIN [Concomitant]
     Active Substance: PRAVASTATIN
  34. PREDNISOLONE [Concomitant]
     Active Substance: PREDNISOLONE
  35. PREMARIN [Concomitant]
     Active Substance: ESTROGENS, CONJUGATED
  36. VICTOZA [Concomitant]
     Active Substance: LIRAGLUTIDE

REACTIONS (14)
  - Chronic kidney disease [Not Recovered/Not Resolved]
  - Anhedonia [Not Recovered/Not Resolved]
  - Emotional distress [Not Recovered/Not Resolved]
  - Anxiety [Not Recovered/Not Resolved]
  - Pain [Not Recovered/Not Resolved]
  - Asthenia [Not Recovered/Not Resolved]
  - Urinary incontinence [Not Recovered/Not Resolved]
  - Fatigue [Not Recovered/Not Resolved]
  - Bone demineralisation [Not Recovered/Not Resolved]
  - Device related infection [Unknown]
  - Foot fracture [Recovered/Resolved]
  - Gait inability [Not Recovered/Not Resolved]
  - Foot fracture [Not Recovered/Not Resolved]
  - Hypertension [Not Recovered/Not Resolved]

NARRATIVE: CASE EVENT DATE: 20110101
